FAERS Safety Report 8976454 (Version 1)
Quarter: 2012Q4

REPORT INFORMATION
  Report Type: 
  Country: US (occurrence: US)
  Receive Date: 20121220
  Receipt Date: 20121220
  Transmission Date: 20130627
  Serious: Yes (Other)
  Sender: FDA-Public Use
  Company Number: US-JNJFOC-20121207344

PATIENT
  Sex: Female
  Weight: 58.06 kg

DRUGS (1)
  1. NUCYNTA [Suspect]
     Indication: PAIN
     Dosage: 4 times a day
     Route: 048
     Dates: start: 2011

REACTIONS (3)
  - Blood cholesterol increased [Not Recovered/Not Resolved]
  - Drug screen false positive [Not Recovered/Not Resolved]
  - Depression [Not Recovered/Not Resolved]
